FAERS Safety Report 15750561 (Version 1)
Quarter: 2018Q4

REPORT INFORMATION
  Report Type: Spontaneous
  Country: US (occurrence: US)
  Receive Date: 20181221
  Receipt Date: 20181221
  Transmission Date: 20190205
  Serious: Yes (Other)
  Sender: FDA-Public Use
  Company Number: US-TEVA-2018-US-991368

PATIENT
  Age: 71 Year
  Sex: Male

DRUGS (2)
  1. BENDAMUSTINE HYDROCHLORIDE. [Suspect]
     Active Substance: BENDAMUSTINE HYDROCHLORIDE
     Indication: HAIRY CELL LEUKAEMIA
     Dosage: (TOTAL 6 CYCLE)
     Route: 042
  2. RITUXIMAB. [Suspect]
     Active Substance: RITUXIMAB
     Indication: HAIRY CELL LEUKAEMIA
     Dosage: CYCLIC (4 CYCLE)
     Route: 065

REACTIONS (3)
  - Infusion related reaction [Unknown]
  - Thrombocytopenia [Unknown]
  - Product use in unapproved indication [Unknown]
